FAERS Safety Report 6492589-6 (Version None)
Quarter: 2009Q4

REPORT INFORMATION
  Report Type: 
  Country: None (occurrence: None)
  Receive Date: 20091214
  Receipt Date: 20091130
  Transmission Date: 20100525
  Serious: Yes (Hospitalization)
  Sender: FDA-Public Use
  Company Number: US-BRISTOL-MYERS SQUIBB COMPANY-14890909

PATIENT
  Age: 10 Year
  Sex: Female

DRUGS (4)
  1. TENIPOSIDE [Suspect]
     Indication: ACUTE LYMPHOCYTIC LEUKAEMIA
     Dosage: FIFTH COURSE;ALSO TAKEN:805MG/M2 PREVIOUSLY;REDUCED TO 720MG/M2 OVER 8HOURS
  2. CYTARABINE [Suspect]
     Indication: ACUTE LYMPHOCYTIC LEUKAEMIA
     Dosage: FIFTH COURSE;REDUCED TO 230MG/M2 OVER 8HOUR
  3. DIPHENHYDRAMINE HCL [Concomitant]
     Route: 042
  4. PROCHLORPERAZINE [Concomitant]
     Route: 042

REACTIONS (4)
  - HYPOTENSION [None]
  - METABOLIC ACIDOSIS [None]
  - OVERDOSE [None]
  - SOMNOLENCE [None]
